FAERS Safety Report 16257883 (Version 3)
Quarter: 2019Q3

REPORT INFORMATION
  Report Type: Spontaneous
  Country: US (occurrence: US)
  Receive Date: 20190430
  Receipt Date: 20190809
  Transmission Date: 20191004
  Serious: No
  Sender: FDA-Public Use
  Company Number: US-PFIZER INC-2019177197

PATIENT
  Age: 72 Year
  Sex: Female

DRUGS (4)
  1. CELEBREX [Suspect]
     Active Substance: CELECOXIB
     Indication: MUSCULOSKELETAL STIFFNESS
  2. INDAPAMIDE. [Concomitant]
     Active Substance: INDAPAMIDE
     Indication: STRESS
  3. CELEBREX [Suspect]
     Active Substance: CELECOXIB
     Indication: ARTHRALGIA
     Dosage: 200 MG, 1X/DAY
     Dates: start: 2000
  4. INDAPAMIDE. [Concomitant]
     Active Substance: INDAPAMIDE
     Indication: HYPERTENSION
     Dosage: 1.25 MG, 1X/DAY

REACTIONS (2)
  - Pain [Unknown]
  - Fall [Unknown]

NARRATIVE: CASE EVENT DATE: 20190421
